FAERS Safety Report 6240823-X (Version None)
Quarter: 2009Q2

REPORT INFORMATION
  Report Type: 
  Country: None (occurrence: None)
  Receive Date: 20090623
  Receipt Date: 20090611
  Transmission Date: 20091009
  Serious: Yes (Hospitalization, Other)
  Sender: FDA-Public Use
  Company Number: CH-ELI_LILLY_AND_COMPANY-CH200905000020

PATIENT
  Sex: Male
  Weight: 120 kg

DRUGS (11)
  1. BYETTA [Suspect]
     Indication: DIABETES MELLITUS
     Dosage: 10 UG, EACH EVENING
     Route: 058
     Dates: start: 20080201
  2. BYETTA [Suspect]
     Dosage: 5 UG, EACH MORNING
     Route: 058
     Dates: start: 20090529
  3. BYETTA [Suspect]
     Dosage: 5 UG, EACH EVENING
     Route: 058
     Dates: start: 20090529
  4. GLUCOPHAGE [Concomitant]
     Indication: DIABETES MELLITUS
     Dosage: UNK, UNKNOWN
     Route: 048
  5. ACETYLSALICYLIC ACID [Concomitant]
     Indication: CORONARY ARTERY DISEASE
     Dosage: 100 MG, DAILY (1/D)
     Route: 048
  6. NITRODERM [Concomitant]
     Indication: CORONARY ARTERY DISEASE
     Dosage: 100 UNK,
     Route: 062
  7. TORSEMIDE [Concomitant]
     Indication: CORONARY ARTERY DISEASE
     Dosage: 1 CAP, DAILY (1/D)
     Route: 048
  8. NITROGLYCERIN [Concomitant]
     Indication: CORONARY ARTERY DISEASE
     Dosage: UNK UNK, AS NEEDED
     Route: 048
  9. PRADIF [Concomitant]
     Dosage: UNK, UNKNOWN
     Route: 048
  10. ZYLORIC [Concomitant]
     Indication: GOUT
     Dosage: UNK, UNKNOWN
     Route: 048
  11. REMERON [Concomitant]
     Indication: DEPRESSION
     Dosage: 30 MG, DAILY (1/D)
     Route: 048
     Dates: start: 20090101

REACTIONS (10)
  - ABDOMINAL PAIN UPPER [None]
  - ANGINA PECTORIS [None]
  - COLD SWEAT [None]
  - HEADACHE [None]
  - HOSPITALISATION [None]
  - MUSCLE SPASMS [None]
  - MUSCULOSKELETAL PAIN [None]
  - NAUSEA [None]
  - PALPITATIONS [None]
  - TREMOR [None]
